FAERS Safety Report 5025373-0 (Version None)
Quarter: 2006Q2

REPORT INFORMATION
  Report Type: 
  Country: None (occurrence: None)
  Receive Date: 20060426
  Receipt Date: 20060109
  Transmission Date: 20061013
  Serious: Yes (Other)
  Sender: FDA-Public Use
  Company Number: 2006006341

PATIENT
  Age: 48 Year
  Sex: Female
  Weight: 63.5036 kg

DRUGS (3)
  1. LYRICA [Suspect]
     Indication: NEURALGIA
     Dates: start: 20051201
  2. SYNTHROID [Concomitant]
  3. PREMARIN [Concomitant]

REACTIONS (3)
  - AGITATION [None]
  - INSOMNIA [None]
  - NERVOUSNESS [None]
